FAERS Safety Report 18567446 (Version 2)
Quarter: 2023Q4

REPORT INFORMATION
  Report Type: Spontaneous
  Country: DE (occurrence: DE)
  Receive Date: 20201202
  Receipt Date: 20231122
  Transmission Date: 20240110
  Serious: Yes (Disabling, Other)
  Sender: FDA-Public Use
  Company Number: DE-PIRAMAL ENTERPRISES LIMITED-2020-PEL-000654

PATIENT

DRUGS (16)
  1. FENTANYL [Suspect]
     Active Substance: FENTANYL\FENTANYL CITRATE
     Indication: Surgery
     Dosage: 0.2 MILLIGRAM, 1 TOTAL (SOLUTION FOR INJECTION)
     Route: 065
  2. SEVOFLURANE [Suspect]
     Active Substance: SEVOFLURANE
     Indication: Surgery
     Dosage: 2.3 PERCENT INHALATION SOLUTION
     Route: 065
     Dates: start: 20190819, end: 20190819
  3. PIRITRAMIDE [Suspect]
     Active Substance: PIRITRAMIDE
     Indication: Surgery
     Dosage: 7.5 MILLIGRAM
     Route: 065
  4. HALDOL [Suspect]
     Active Substance: HALOPERIDOL
     Indication: Surgery
     Dosage: UNK
     Route: 065
  5. PROPOFOL [Suspect]
     Active Substance: PROPOFOL
     Indication: Tonsillectomy
     Dosage: UNK (FEMTOGRAM)
     Route: 065
     Dates: start: 20190819
  6. PROPOFOL [Suspect]
     Active Substance: PROPOFOL
     Indication: Anaesthesia
     Dosage: UNK
     Route: 065
     Dates: start: 20190820, end: 20190820
  7. PROPOFOL [Suspect]
     Active Substance: PROPOFOL
     Dosage: 300 MILLIGRAM, 1 TOTAL
     Route: 065
     Dates: start: 20190820, end: 20190820
  8. PROPOFOL [Suspect]
     Active Substance: PROPOFOL
     Dosage: 300 MILLIGRAM
     Route: 042
     Dates: start: 20190819, end: 20190819
  9. PROCHLORPERAZINE [Suspect]
     Active Substance: PROCHLORPERAZINE
     Indication: Product used for unknown indication
     Dosage: UNK
     Route: 065
     Dates: start: 20190819
  10. MIVACURIUM [Suspect]
     Active Substance: MIVACURIUM
     Indication: Surgery
     Dosage: 14 MILLIGRAM, 1 TOTAL
     Route: 065
     Dates: start: 20190819
  11. ONDANSETRON [Suspect]
     Active Substance: ONDANSETRON
     Indication: Surgery
     Dosage: 4 MILLIGRAM
     Route: 065
     Dates: start: 20190819
  12. DEXAMETHASONE [Suspect]
     Active Substance: DEXAMETHASONE
     Indication: Surgery
     Dosage: 8 MILLIGRAM, 1 TOTAL
     Route: 065
     Dates: start: 20190819
  13. DICLOFENAC [Suspect]
     Active Substance: DICLOFENAC
     Indication: Surgery
     Dosage: 100 MILLIGRAM
     Route: 065
     Dates: start: 20190818, end: 20190902
  14. DICLOFENAC [Suspect]
     Active Substance: DICLOFENAC
     Indication: Pain
  15. AMIKACIN SULFATE [Suspect]
     Active Substance: AMIKACIN SULFATE
     Indication: Product used for unknown indication
     Dosage: 2500 MILLIGRAM
     Route: 065
  16. METAMIZOLE [Concomitant]
     Active Substance: METAMIZOLE
     Indication: Surgery
     Dosage: 2500 MILLIGRAM
     Route: 065

REACTIONS (25)
  - Dyspnoea [Not Recovered/Not Resolved]
  - Blood pressure measurement [Not Recovered/Not Resolved]
  - Impaired work ability [Not Recovered/Not Resolved]
  - Oropharyngeal discomfort [Not Recovered/Not Resolved]
  - Vision blurred [Not Recovered/Not Resolved]
  - Asthenia [Not Recovered/Not Resolved]
  - Cardiovascular disorder [Not Recovered/Not Resolved]
  - General physical health deterioration [Not Recovered/Not Resolved]
  - Performance status decreased [Not Recovered/Not Resolved]
  - Chest discomfort [Not Recovered/Not Resolved]
  - Chest pain [Not Recovered/Not Resolved]
  - Flatulence [Not Recovered/Not Resolved]
  - Speech disorder [Not Recovered/Not Resolved]
  - Weight bearing difficulty [Not Recovered/Not Resolved]
  - Oropharyngeal pain [Not Recovered/Not Resolved]
  - Asthenia [Unknown]
  - Off label use [Unknown]
  - Product use in unapproved indication [Unknown]
  - Vision blurred [Not Recovered/Not Resolved]
  - Somnolence [Not Recovered/Not Resolved]
  - Nausea [Unknown]
  - Visual impairment [Not Recovered/Not Resolved]
  - Somnolence [Not Recovered/Not Resolved]
  - Heart rate increased [Not Recovered/Not Resolved]
  - Hyperventilation [Not Recovered/Not Resolved]

NARRATIVE: CASE EVENT DATE: 20190818
